FAERS Safety Report 7222288-4 (Version None)
Quarter: 2011Q1

REPORT INFORMATION
  Report Type: 
  Country: None (occurrence: None)
  Receive Date: 20110112
  Receipt Date: 20110106
  Transmission Date: 20110831
  Serious: Yes (Hospitalization, Other)
  Sender: FDA-Public Use
  Company Number: FR-BRISTOL-MYERS SQUIBB COMPANY-15475825

PATIENT
  Age: 96 Year
  Sex: Female
  Weight: 41 kg

DRUGS (8)
  1. COAPROVEL TABS 300MG/ 25MG [Suspect]
     Route: 048
     Dates: end: 20101116
  2. DURAGESIC-100 [Suspect]
     Dosage: DUROGESIC (FENTANYL):(4.2 MG/10.5 CMA?)
     Dates: start: 20101115
  3. KARDEGIC [Concomitant]
     Dosage: 1 SACHET
     Route: 048
  4. SOLUPRED [Suspect]
     Dosage: ORO-DISPERSIBLE TABLET  SOLUPRED 20 MG
     Route: 048
     Dates: start: 20101107, end: 20101116
  5. SINGULAIR [Concomitant]
     Dosage: 1TABLET
     Route: 048
     Dates: start: 20101107, end: 20101116
  6. CEFPODOXIME PROXETIL [Concomitant]
     Dosage: ORELOX 100 MG
     Route: 048
     Dates: start: 20101107, end: 20101116
  7. FLIXOTIDE [Concomitant]
     Dosage: FLIXOTIDE DISKUS 500A?G/DOSE 2 ADMINISTRATIONS
     Route: 055
     Dates: start: 20101107, end: 20101116
  8. FORADIL [Concomitant]
     Dosage: 2DF:2 ADMINISTRATIONS
     Route: 055
     Dates: start: 20101107, end: 20101116

REACTIONS (8)
  - CONFUSIONAL STATE [None]
  - VOMITING [None]
  - CHEST INJURY [None]
  - SKIN TURGOR DECREASED [None]
  - BRONCHITIS [None]
  - RENAL FAILURE CHRONIC [None]
  - FALL [None]
  - LIMB INJURY [None]
